FAERS Safety Report 6171159-3 (Version None)
Quarter: 2009Q2

REPORT INFORMATION
  Report Type: 
  Country: None (occurrence: None)
  Receive Date: 20090429
  Receipt Date: 20090423
  Transmission Date: 20091009
  Serious: Yes (Other)
  Sender: FDA-Public Use
  Company Number: US-ASTRAZENECA-2009UW10249

PATIENT
  Age: 69 Year
  Sex: Female
  Weight: 73.5 kg

DRUGS (4)
  1. ARIMIDEX [Suspect]
     Route: 048
  2. LORAZEPAM [Concomitant]
     Indication: PANIC ATTACK
     Route: 048
  3. TYLENOL [Concomitant]
     Route: 048
  4. BLOOD PRESSURE PILL [Concomitant]
     Route: 048

REACTIONS (3)
  - BLOOD GLUCOSE INCREASED [None]
  - HEPATIC STEATOSIS [None]
  - ORAL PAIN [None]
